FAERS Safety Report 9570530 (Version 3)
Quarter: 2013Q4

REPORT INFORMATION
  Report Type: Spontaneous
  Country: BR (occurrence: BR)
  Receive Date: 20131001
  Receipt Date: 20131014
  Transmission Date: 20140711
  Serious: Yes (Other)
  Sender: FDA-Public Use
  Company Number: BR-AMGEN-BRASP2013058359

PATIENT
  Age: 69 Year
  Sex: Female
  Weight: 63 kg

DRUGS (8)
  1. ENBREL [Suspect]
     Indication: RHEUMATOID ARTHRITIS
     Dosage: 50 MG, ONCE WEEKLY
     Route: 058
     Dates: start: 201305, end: 2013
  2. MAREVAN [Concomitant]
     Dosage: 1 TABLET (5 MG) A DAY
  3. PREDNISONE [Concomitant]
     Indication: RHEUMATOID ARTHRITIS
     Dosage: 1 TABLET (5MG) A DAY
  4. METHOTREXATE [Concomitant]
     Dosage: 1 (TABLET) 7.5 MG, ON THURSDAYS AND FRIDAYS
  5. EXODUS                             /01588502/ [Concomitant]
     Dosage: 1 TABLET (10MG) A DAY
  6. FOLIC ACID [Concomitant]
     Dosage: 1 TABLET (5 MG), ONCE DAILY
     Route: 048
  7. ARADOIS [Concomitant]
     Dosage: 1 TABLET (100 MG), ONCE DAILY
     Route: 048
  8. ABLOK PLUS [Concomitant]
     Dosage: 1 TABLET (100 MG), ONCE DAILY
     Route: 048

REACTIONS (5)
  - Thrombosis [Unknown]
  - Injection site pain [Not Recovered/Not Resolved]
  - Injection site hypersensitivity [Not Recovered/Not Resolved]
  - Injection site erythema [Not Recovered/Not Resolved]
  - Injection site pruritus [Not Recovered/Not Resolved]
